FAERS Safety Report 12961371 (Version 1)
Quarter: 2016Q4

REPORT INFORMATION
  Report Type: Report from Study
  Country: JP (occurrence: JP)
  Receive Date: 20161121
  Receipt Date: 20161121
  Transmission Date: 20170207
  Serious: Yes (Death, Life-Threatening, Other)
  Sender: FDA-Public Use
  Company Number: JP-UCBSA-2016043850

PATIENT
  Age: 65 Year
  Sex: Female
  Weight: 57 kg

DRUGS (16)
  1. LEVETIRACETAM. [Suspect]
     Active Substance: LEVETIRACETAM
     Indication: COMPLEX PARTIAL SEIZURES
     Dosage: 1000 MG, 2X/DAY (BID), DOSAGE FORM : SYR
     Route: 048
     Dates: start: 20160208, end: 20160211
  2. CHLORPHENIRAMINE MALEATE. [Concomitant]
     Active Substance: CHLORPHENIRAMINE MALEATE
     Dosage: 5 MG, 3X/DAY (TID)
     Route: 065
     Dates: start: 20160229, end: 20160304
  3. ATARAX-P [Concomitant]
     Active Substance: HYDROXYZINE HYDROCHLORIDE
     Indication: PRODUCT USED FOR UNKNOWN INDICATION
     Dosage: 25 MG, ONCE DAILY (QD)
     Route: 065
     Dates: start: 20160225, end: 20160225
  4. ALBUMIN [Concomitant]
     Active Substance: ALBUMIN HUMAN
     Indication: PRODUCT USED FOR UNKNOWN INDICATION
     Dosage: 12.5 MG, ONCE DAILY (QD)
     Route: 042
     Dates: start: 20160223, end: 20160225
  5. DENOSINE [Concomitant]
     Active Substance: GANCICLOVIR
     Indication: PRODUCT USED FOR UNKNOWN INDICATION
     Dosage: 150 MG, ONCE DAILY (QD)
     Route: 041
     Dates: start: 20160219, end: 20160302
  6. ATARAX-P [Concomitant]
     Active Substance: HYDROXYZINE HYDROCHLORIDE
     Dosage: 25 MG, 1 DAY
     Route: 065
     Dates: start: 20160301, end: 20160301
  7. LEVETIRACETAM. [Suspect]
     Active Substance: LEVETIRACETAM
     Dosage: 1250 MG, 2X/DAY (BID)
     Route: 048
     Dates: start: 20160212, end: 20160212
  8. FUNGUARD [Concomitant]
     Active Substance: MICAFUNGIN SODIUM
     Indication: PRODUCT USED FOR UNKNOWN INDICATION
     Dosage: 150 MG, ONCE DAILY (QD)
     Route: 041
     Dates: start: 20160212, end: 20160302
  9. GASTER [Concomitant]
     Active Substance: FAMOTIDINE
     Indication: PRODUCT USED FOR UNKNOWN INDICATION
     Dosage: 20 MG, ONCE DAILY (QD)
     Dates: start: 20160224, end: 20160303
  10. LEVETIRACETAM. [Suspect]
     Active Substance: LEVETIRACETAM
     Dosage: 1500 MG, 2X/DAY (BID)
     Route: 048
     Dates: start: 20160213, end: 20160223
  11. SOL-MELCORT [Concomitant]
     Active Substance: METHYLPREDNISOLONE SODIUM SUCCINATE
     Indication: PRODUCT USED FOR UNKNOWN INDICATION
     Dosage: 1 G, ONCE DAILY (QD)
     Dates: start: 20160223, end: 20160225
  12. SOL-MELCORT [Concomitant]
     Active Substance: METHYLPREDNISOLONE SODIUM SUCCINATE
     Dosage: 500 MG, ONCE DAILY (QD)
     Route: 065
     Dates: start: 20160226, end: 20160228
  13. E KEPPRA [Suspect]
     Active Substance: LEVETIRACETAM
     Indication: COMPLEX PARTIAL SEIZURES
     Dosage: 750 MG, 2X/DAY (BID)
     Route: 041
     Dates: start: 20160224, end: 20160304
  14. ZOSYN [Concomitant]
     Active Substance: PIPERACILLIN SODIUM\TAZOBACTAM SODIUM
     Indication: PRODUCT USED FOR UNKNOWN INDICATION
     Dosage: 2.25 G, 4X/DAY (QID)
     Route: 042
     Dates: start: 20160215, end: 20160225
  15. LASIX [Concomitant]
     Active Substance: FUROSEMIDE
     Indication: PRODUCT USED FOR UNKNOWN INDICATION
     Dosage: 20 MG, DAY
     Dates: start: 20160218, end: 20160228
  16. CHLORPHENIRAMINE MALEATE. [Concomitant]
     Active Substance: CHLORPHENIRAMINE MALEATE
     Indication: PRODUCT USED FOR UNKNOWN INDICATION
     Dosage: 5 MG, ONCE DAILY (QD)
     Route: 065
     Dates: start: 20160223, end: 20160224

REACTIONS (3)
  - Epstein-Barr virus associated lymphoproliferative disorder [Fatal]
  - Atrial fibrillation [Recovering/Resolving]
  - Limbic encephalitis [Fatal]

NARRATIVE: CASE EVENT DATE: 201602
